FAERS Safety Report 9278673 (Version 2)
Quarter: 2013Q2

REPORT INFORMATION
  Report Type: Spontaneous
  Country: US (occurrence: US)
  Receive Date: 20130508
  Receipt Date: 20130605
  Transmission Date: 20140414
  Serious: No
  Sender: FDA-Public Use
  Company Number: US-PFIZER INC-2013140456

PATIENT
  Sex: 0

DRUGS (1)
  1. ADVIL [Suspect]
     Dosage: UNK

REACTIONS (2)
  - Malaise [Unknown]
  - Abdominal discomfort [Unknown]
